FAERS Safety Report 8781043 (Version 2)
Quarter: 2012Q4

REPORT INFORMATION
  Report Type: 
  Country: US (occurrence: US)
  Receive Date: 20120913
  Receipt Date: 20120930
  Transmission Date: 20130627
  Serious: Yes (Hospitalization, Other)
  Sender: FDA-Public Use
  Company Number: US-009507513-1209USA005106

PATIENT
  Age: 56 None
  Sex: Male

DRUGS (3)
  1. VICTRELIS [Suspect]
     Indication: HEPATITIS C
     Dosage: UNK
     Dates: start: 20120829, end: 20120912
  2. REBETOL [Suspect]
     Indication: HEPATITIS C
     Dosage: UNK
     Dates: start: 20120801, end: 20120912
  3. PEGASYS [Concomitant]
     Indication: HEPATITIS C
     Dosage: UNK
     Dates: start: 20120801, end: 20120912

REACTIONS (6)
  - Abdominal distension [Unknown]
  - Dyspnoea [Unknown]
  - Pneumonia [Unknown]
  - Hernia [Unknown]
  - Nausea [Unknown]
  - Dizziness [Unknown]
